FAERS Safety Report 18364662 (Version 1)
Quarter: 2020Q4

REPORT INFORMATION
  Report Type: Spontaneous
  Country: US (occurrence: US)
  Receive Date: 20201001
  Receipt Date: 20201001
  Transmission Date: 20210114
  Serious: Yes (Death)
  Sender: FDA-Public Use
  Company Number: None

PATIENT
  Age: 6 Decade
  Sex: Male

DRUGS (3)
  1. RITONAVIR. [Suspect]
     Active Substance: RITONAVIR
     Indication: COVID-19
     Route: 048
     Dates: start: 2020
  2. LOPINAVIR [Suspect]
     Active Substance: LOPINAVIR
     Indication: COVID-19
     Dosage: ?          OTHER DOSE:400MG/100MG;?
     Route: 048
     Dates: start: 2020
  3. INTERFERON ALFA-2B [Suspect]
     Active Substance: INTERFERON ALFA-2B
     Indication: COVID-19
     Dates: start: 2020

REACTIONS (6)
  - Product use in unapproved indication [None]
  - Multiple organ dysfunction syndrome [None]
  - Product use issue [None]
  - Haemodialysis [None]
  - Acute on chronic liver failure [None]
  - Acute kidney injury [None]
